FAERS Safety Report 21505740 (Version 1)
Quarter: 2022Q4

REPORT INFORMATION
  Report Type: Report from Study
  Country: US (occurrence: US)
  Receive Date: 20221026
  Receipt Date: 20221026
  Transmission Date: 20230113
  Serious: No
  Sender: FDA-Public Use
  Company Number: US-ABBVIE-4131950

PATIENT
  Sex: Male
  Weight: 103.87 kg

DRUGS (19)
  1. RINVOQ [Suspect]
     Active Substance: UPADACITINIB
     Indication: Rheumatoid arthritis
     Dosage: 15 MG
     Route: 048
     Dates: start: 20220129
  2. 10 mg Atorvastatin calcium (Atorvastatin calcium) [Concomitant]
     Indication: Product used for unknown indication
     Dosage: 10 MG
     Route: 048
  3. Singulair (Montelukast sodium) [Concomitant]
     Indication: Product used for unknown indication
     Route: 048
  4. Diltiazem 12hr (Diltiazem hydrochloride) [Concomitant]
     Indication: Product used for unknown indication
     Dosage: 120 MG
  5. 2.5 mg Eliquis (Apixaban) [Concomitant]
     Indication: Product used for unknown indication
     Dosage: 2.5 MG
     Route: 048
  6. Leucovorin calcium (Calcium folinate) [Concomitant]
     Indication: Product used for unknown indication
     Dosage: 10 MG
     Route: 048
  7. METFORMIN [Concomitant]
     Active Substance: METFORMIN HYDROCHLORIDE
     Indication: Product used for unknown indication
  8. 20 mg Pantoprazole sodium (Pantoprazole sodium sesquihydrate) [Concomitant]
     Indication: Product used for unknown indication
     Route: 048
  9. MAGNESIUM [Concomitant]
     Active Substance: MAGNESIUM
     Indication: Product used for unknown indication
     Dosage: 100 MG
     Route: 048
  10. PLAVIX [Concomitant]
     Active Substance: CLOPIDOGREL BISULFATE
     Indication: Product used for unknown indication
     Dosage: 75 MG
     Route: 048
  11. METOPROLOL SUCCINATE [Concomitant]
     Active Substance: METOPROLOL SUCCINATE
     Indication: Product used for unknown indication
  12. 10 mg Prednisone (Prednisone) [Concomitant]
     Indication: Product used for unknown indication
     Dosage: 10 MG
     Route: 048
  13. FENOFIBRATE 120 MG TABLET [Concomitant]
     Indication: Product used for unknown indication
     Dosage: 120 MG
     Route: 048
  14. Vascepa (Eicosapentaenoic acid ethyl ester) [Concomitant]
     Indication: Product used for unknown indication
  15. 10 mg Lisinopril (Lisinopril) [Concomitant]
     Indication: Product used for unknown indication
     Dosage: 10 MG
     Route: 048
  16. VITAMINS [Concomitant]
     Active Substance: VITAMINS
     Indication: Product used for unknown indication
  17. 10 mg Glipizide, Er (Glipizide) [Concomitant]
     Indication: Product used for unknown indication
     Dosage: 10 MG
     Route: 048
  18. 2.5 mg Methotrexate (Methotrexate) [Concomitant]
     Indication: Product used for unknown indication
     Dosage: 2.5 MG
     Route: 048
  19. SULFASALAZINE 500 MG TABLET [Concomitant]
     Indication: Product used for unknown indication
     Dosage: 500 MG
     Route: 048

REACTIONS (2)
  - Pain [Unknown]
  - Drug ineffective [Unknown]

NARRATIVE: CASE EVENT DATE: 20220101
